FAERS Safety Report 4639239-9 (Version None)
Quarter: 2005Q2

REPORT INFORMATION
  Report Type: 
  Country: None (occurrence: None)
  Receive Date: 20050418
  Receipt Date: 20050328
  Transmission Date: 20051028
  Serious: No
  Sender: FDA-Public Use
  Company Number: 2005-0123849-NL

PATIENT
  Age: 76 Year
  Sex: Female

DRUGS (5)
  1. VECURONIUM BROMIDE [Suspect]
     Indication: LIFE SUPPORT
     Dosage: 4 MG/2 MG INTRAVENOUS DRIP
     Route: 041
     Dates: start: 20041211, end: 20041213
  2. VECURONIUM BROMIDE [Suspect]
     Indication: LIFE SUPPORT
     Dosage: 4 MG/2 MG INTRAVENOUS DRIP
     Route: 041
     Dates: start: 20041214, end: 20041217
  3. METHYLPREDNISOLONE SODIUM SUCCINATE [Suspect]
     Dosage: DF
  4. MEROPENEM [Concomitant]
  5. MINOCYCLINE HYDROCHLORIDE [Concomitant]

REACTIONS (1)
  - MUSCULAR WEAKNESS [None]
